FAERS Safety Report 4934122-3 (Version None)
Quarter: 2006Q1

REPORT INFORMATION
  Report Type: 
  Country: None (occurrence: None)
  Receive Date: 20060303
  Receipt Date: 20060223
  Transmission Date: 20060701
  Serious: Yes (Other)
  Sender: FDA-Public Use
  Company Number: 2006027535

PATIENT
  Age: 63 Year
  Sex: Female
  Weight: 79.3795 kg

DRUGS (12)
  1. PREDNISONE TAB [Suspect]
     Indication: IDIOPATHIC PULMONARY FIBROSIS
     Dosage: (11 MG)
  2. CELEBREX [Suspect]
     Indication: OSTEOARTHRITIS
     Dosage: 200 MG (200 MG, 1 IN 1 D)
     Dates: start: 20050101
  3. ACTIMMUNE (INTERFERON GAMMA) [Concomitant]
  4. NEURONTIN [Concomitant]
  5. PRAVACHOL [Concomitant]
  6. FOSAMAX [Concomitant]
  7. PREVACID [Concomitant]
  8. ACETYLCYSTEINE [Concomitant]
  9. IMURAN [Concomitant]
  10. VITAMIN B6 (VITAMIN B6) [Concomitant]
  11. CALCIUM CARBONATE (CALCIUM CARBONATE) [Concomitant]
  12. PREDNISONE TAB [Concomitant]

REACTIONS (9)
  - CATARACT [None]
  - GLAUCOMA [None]
  - HAEMOPTYSIS [None]
  - IDIOPATHIC PULMONARY FIBROSIS [None]
  - ILL-DEFINED DISORDER [None]
  - PAIN [None]
  - SLEEP DISORDER [None]
  - VISION BLURRED [None]
  - VISUAL DISTURBANCE [None]
